FAERS Safety Report 13395475 (Version 1)
Quarter: 2017Q2

REPORT INFORMATION
  Report Type: Spontaneous
  Country: US (occurrence: US)
  Receive Date: 20170401
  Receipt Date: 20170401
  Transmission Date: 20170830
  Serious: Yes (Hospitalization)
  Sender: FDA-Public Use
  Company Number: None

PATIENT
  Age: 41 Year
  Sex: Female
  Weight: 124.2 kg

DRUGS (2)
  1. MULTIHANCE [Suspect]
     Active Substance: GADOBENATE DIMEGLUMINE
     Route: 042
  2. MULTIHANCE [Concomitant]
     Active Substance: GADOBENATE DIMEGLUMINE

REACTIONS (8)
  - Pruritus [None]
  - Dyspnoea [None]
  - Tinnitus [None]
  - Nausea [None]
  - Dizziness [None]
  - Throat irritation [None]
  - Headache [None]
  - Vomiting [None]

NARRATIVE: CASE EVENT DATE: 20170310
